FAERS Safety Report 22713449 (Version 5)
Quarter: 2023Q4

REPORT INFORMATION
  Report Type: Report from Study
  Country: FR (occurrence: FR)
  Receive Date: 20230717
  Receipt Date: 20231009
  Transmission Date: 20240109
  Serious: Yes (Death, Hospitalization, Other)
  Sender: FDA-Public Use
  Company Number: FR-002147023-NVSC2023FR146386

PATIENT
  Age: 78 Year
  Sex: Female
  Weight: 60 kg

DRUGS (27)
  1. LETROZOLE [Suspect]
     Active Substance: LETROZOLE
     Indication: Breast cancer
     Dosage: 2.5 MILLIGRAM, QD
     Route: 065
     Dates: start: 20220526, end: 20230616
  2. PALBOCICLIB [Suspect]
     Active Substance: PALBOCICLIB
     Indication: Breast cancer
     Dosage: 75 MG, QD (CYCLE 14)
     Route: 048
     Dates: start: 20220526, end: 20230615
  3. SALINE [Concomitant]
     Active Substance: SODIUM CHLORIDE
     Indication: Product used for unknown indication
     Dosage: 50 ML (STOPPED OR INTERRUPTED, X3/2
     Route: 042
     Dates: start: 20230618
  4. COVERAM [Concomitant]
     Active Substance: AMLODIPINE\PERINDOPRIL
     Indication: Product used for unknown indication
     Dosage: UNK
     Route: 065
     Dates: start: 20230617
  5. COVERAM [Concomitant]
     Active Substance: AMLODIPINE\PERINDOPRIL
     Dosage: UNK
     Route: 065
  6. SPIRAMYCIN [Concomitant]
     Active Substance: SPIRAMYCIN
     Indication: Product used for unknown indication
     Dosage: 250 ML (250 ML GLUCOSE 5%
     Route: 042
     Dates: start: 20230618
  7. ALDACTONE [Concomitant]
     Active Substance: SPIRONOLACTONE
     Indication: Product used for unknown indication
     Dosage: 25 MG, QD (1X DAY, A.M., SUSPENDED
     Route: 048
     Dates: start: 20230617, end: 20230617
  8. XARELTO [Concomitant]
     Active Substance: RIVAROXABAN
     Indication: Product used for unknown indication
     Dosage: UNK, QD (20)
     Route: 048
     Dates: start: 20230617
  9. XARELTO [Concomitant]
     Active Substance: RIVAROXABAN
     Dosage: 20 MG, QD (1X DAY A.M.)
     Route: 065
     Dates: start: 20230617
  10. CORDARONE [Concomitant]
     Active Substance: AMIODARONE HYDROCHLORIDE
     Indication: Product used for unknown indication
     Dosage: 200 MG, QD (1/ D A.M.)
     Route: 048
     Dates: start: 20230617
  11. ALBUTEROL [Concomitant]
     Active Substance: ALBUTEROL
     Indication: Product used for unknown indication
     Dosage: UNK (A.M.), INHALER
     Route: 055
     Dates: start: 20230618, end: 20230618
  12. AMIODARONE [Concomitant]
     Active Substance: AMIODARONE
     Indication: Product used for unknown indication
     Dosage: 200 MILLIGRAM, QD
     Route: 065
     Dates: start: 20230617
  13. POTASSIUM CHLORIDE [Concomitant]
     Active Substance: POTASSIUM CHLORIDE
     Indication: Product used for unknown indication
     Dosage: 6 DOSAGE FORM, QD,2 DOSAGE FORM, TID
     Route: 048
     Dates: start: 20230616, end: 20230617
  14. POTASSIUM CHLORIDE [Concomitant]
     Active Substance: POTASSIUM CHLORIDE
     Dosage: 6 DOSAGE FORM, QD,2 DOSAGE FORM, TID
     Route: 048
     Dates: start: 20230617, end: 20230617
  15. AMLODIPINE BESYLATE [Concomitant]
     Active Substance: AMLODIPINE BESYLATE
     Indication: Product used for unknown indication
     Dosage: 10MG,QD(1XDAY,A.M SUSPENDED UNTIL FURTHER NOTICE)
     Route: 048
     Dates: start: 20230617, end: 20230617
  16. CEFOTAXIME [Concomitant]
     Active Substance: CEFOTAXIME SODIUM
     Indication: Product used for unknown indication
     Dosage: 1 GRAM
     Route: 065
  17. ACETAMINOPHEN [Concomitant]
     Active Substance: ACETAMINOPHEN
     Indication: Product used for unknown indication
     Dosage: 100 MG (STRENGTH: 1 G/ 100 ML, 4/24H
     Route: 042
     Dates: start: 20230617
  18. DEXTROSE [Concomitant]
     Active Substance: DEXTROSE\DEXTROSE MONOHYDRATE
     Indication: Product used for unknown indication
     Dosage: 500 MILLILITER
     Route: 042
     Dates: start: 20230617
  19. DEXTROSE [Concomitant]
     Active Substance: DEXTROSE\DEXTROSE MONOHYDRATE
     Dosage: 250 ML GLUCOSE 5% X3/24H IV
     Route: 042
     Dates: start: 20230618
  20. LIPTRUZET [Concomitant]
     Active Substance: ATORVASTATIN CALCIUM\EZETIMIBE
     Indication: Product used for unknown indication
     Dosage: UNK
     Route: 065
  21. RAMIPRIL [Concomitant]
     Active Substance: RAMIPRIL
     Indication: Product used for unknown indication
     Dosage: 10 MG, QD (1/ DAY A.M., SUSPENDED
     Route: 048
     Dates: start: 20230617, end: 20230617
  22. IPRATROPIUM [Concomitant]
     Active Substance: IPRATROPIUM
     Indication: Product used for unknown indication
     Dosage: UNK (A.M.), INHALER
     Route: 055
     Dates: start: 20230618, end: 20230618
  23. CEFEPIME HYDROCHLORIDE [Concomitant]
     Active Substance: CEFEPIME HYDROCHLORIDE
     Indication: Product used for unknown indication
     Dosage: 48 ML (1G IN 48 ML SALINE 0.9% INITIAL
     Route: 042
     Dates: start: 20230618
  24. CEFEPIME HYDROCHLORIDE [Concomitant]
     Active Substance: CEFEPIME HYDROCHLORIDE
     Dosage: 50 ML (ML SALINE 0.9% X1/24H IV OVE
     Route: 042
     Dates: start: 20230618
  25. ALDACTAZINE [Concomitant]
     Active Substance: ALTHIAZIDE\SPIRONOLACTONE
     Indication: Product used for unknown indication
     Dosage: UNK
     Route: 065
  26. FUROSEMIDE [Concomitant]
     Active Substance: FUROSEMIDE
     Indication: Product used for unknown indication
     Dosage: 250/25 MILLIGRAM PER MILLILITRE (NITIAL
     Route: 042
     Dates: start: 20230616
  27. FUROSEMIDE [Concomitant]
     Active Substance: FUROSEMIDE
     Dosage: 40 MG (BOLUS)
     Route: 042
     Dates: start: 20230616

REACTIONS (17)
  - Febrile neutropenia [Fatal]
  - Interstitial lung disease [Fatal]
  - Pneumonia [Unknown]
  - Respiratory distress [Unknown]
  - Acute kidney injury [Unknown]
  - Cardiac failure [Unknown]
  - Myocardial ischaemia [Unknown]
  - Polyuria [Unknown]
  - Inflammation [Unknown]
  - General physical condition abnormal [Unknown]
  - Oxygen saturation decreased [Unknown]
  - Respiratory tract infection [Unknown]
  - Anaemia [Unknown]
  - Pyrexia [Not Recovered/Not Resolved]
  - Dyspnoea [Unknown]
  - Fatigue [Unknown]
  - Urinary tract infection [Unknown]

NARRATIVE: CASE EVENT DATE: 20230616
